FAERS Safety Report 5809020-3 (Version None)
Quarter: 2008Q3

REPORT INFORMATION
  Report Type: 
  Country: None (occurrence: None)
  Receive Date: 20080714
  Receipt Date: 20080709
  Transmission Date: 20090109
  Serious: Yes (Death, Other)
  Sender: FDA-Public Use
  Company Number: JP-BRISTOL-MYERS SQUIBB COMPANY-13895321

PATIENT
  Age: 44 Year
  Sex: Female

DRUGS (7)
  1. TAXOL [Suspect]
     Indication: METASTASES TO LIVER
     Dosage: 13MAY2005 TO JUN 2005 80MG/M2. JUN2004TO JUL2004 80MG, JUL04 TO MAR05 60MG.
     Route: 041
     Dates: start: 20050513
  2. TAXOL [Suspect]
     Indication: HEPATIC NEOPLASM MALIGNANT RECURRENT
     Dosage: 13MAY2005 TO JUN 2005 80MG/M2. JUN2004TO JUL2004 80MG, JUL04 TO MAR05 60MG.
     Route: 041
     Dates: start: 20050513
  3. HERCEPTIN [Concomitant]
     Dosage: 4MG/KG FROM MAY 2005
     Route: 065
     Dates: start: 20040601
  4. TAMOXIFEN CITRATE [Concomitant]
     Route: 048
     Dates: start: 20050501
  5. DEXAMETHASONE SODIUM PHOSPHATE [Concomitant]
     Route: 042
     Dates: start: 20050513
  6. RANITIDINE HCL [Concomitant]
     Route: 042
     Dates: start: 20050513
  7. DIPHENHYDRAMINE HCL [Concomitant]
     Route: 048
     Dates: start: 20050513

REACTIONS (3)
  - BONE MARROW FAILURE [None]
  - HEPATIC ATROPHY [None]
  - HEPATIC FAILURE [None]
